FAERS Safety Report 5763544-6 (Version None)
Quarter: 2008Q2

REPORT INFORMATION
  Report Type: 
  Country: None (occurrence: None)
  Receive Date: 20080610
  Receipt Date: 20080530
  Transmission Date: 20081010
  Serious: Yes (Hospitalization)
  Sender: FDA-Public Use
  Company Number: US-JNJFOC-20080506267

PATIENT
  Age: 77 Year
  Sex: Female
  Weight: 81.6 kg

DRUGS (14)
  1. DOXORUBICIN HCL [Suspect]
     Indication: DIFFUSE LARGE B-CELL LYMPHOMA
     Dosage: 40MG/M2. FIRST COURSE OF THERAPY
     Route: 042
  2. RITUXIMAB [Suspect]
     Indication: DIFFUSE LARGE B-CELL LYMPHOMA
     Dosage: 375MG/M2. FIRST COURSE OF THERAPY
     Route: 065
  3. CYCLOPHOSPHAMIDE [Suspect]
     Indication: DIFFUSE LARGE B-CELL LYMPHOMA
     Dosage: 750MG/M2. FIRST COURSE OF THERAPY
     Route: 065
  4. VINCRISTINE [Suspect]
     Indication: DIFFUSE LARGE B-CELL LYMPHOMA
     Dosage: FIRST COURSE OF THERAPY
     Route: 065
  5. PREDNISONE TAB [Suspect]
     Indication: DIFFUSE LARGE B-CELL LYMPHOMA
     Dosage: FIRST COURSE OF THERAPY, TOTAL COURSE DOSE 350MG
     Route: 048
  6. NEULASTA [Suspect]
     Indication: DIFFUSE LARGE B-CELL LYMPHOMA
     Dosage: FIRST COURSE OF THERAPY.
     Route: 058
  7. ATENOLOL [Concomitant]
     Route: 065
  8. AVANDIA [Concomitant]
     Route: 065
  9. DIOVAN [Concomitant]
     Route: 065
  10. INSULIN [Concomitant]
     Route: 065
  11. NEXIUM [Concomitant]
     Route: 065
  12. SULFASALAZINE [Concomitant]
     Route: 065
  13. TRIAMTERENE AND HYDROCHLOROTHIAZIDE [Concomitant]
     Route: 065
  14. ZOLOFT [Concomitant]
     Route: 065

REACTIONS (7)
  - ALANINE AMINOTRANSFERASE INCREASED [None]
  - ASPARTATE AMINOTRANSFERASE INCREASED [None]
  - BLOOD ALKALINE PHOSPHATASE [None]
  - CATHETER RELATED INFECTION [None]
  - PNEUMONITIS [None]
  - PULMONARY EMBOLISM [None]
  - VENOUS THROMBOSIS LIMB [None]
